FAERS Safety Report 7594893-7 (Version None)
Quarter: 2011Q3

REPORT INFORMATION
  Report Type: 
  Country: None (occurrence: None)
  Receive Date: 20110707
  Receipt Date: 20110624
  Transmission Date: 20111222
  Serious: Yes (Other)
  Sender: FDA-Public Use
  Company Number: CA-ELI_LILLY_AND_COMPANY-CA201106007116

PATIENT
  Sex: Male

DRUGS (9)
  1. WELLBUTRIN [Concomitant]
  2. CELEXA [Concomitant]
  3. IMOVANE [Concomitant]
  4. ASPIRIN [Concomitant]
  5. ZYPREXA [Suspect]
     Dosage: 2.5 MG, QD
  6. ZYPREXA ZYDIS [Suspect]
     Dosage: 5 MG, QD
  7. ZYPREXA [Suspect]
     Dosage: 5 MG, QD
  8. VALPROATE SODIUM [Concomitant]
  9. LIPITOR [Concomitant]

REACTIONS (4)
  - CATARACT [None]
  - HYPERGLYCAEMIA [None]
  - HAEMATURIA [None]
  - HEPATIC STEATOSIS [None]
